FAERS Safety Report 19602723 (Version 2)
Quarter: 2021Q3

REPORT INFORMATION
  Report Type: Spontaneous
  Country: JP (occurrence: JP)
  Receive Date: 20210723
  Receipt Date: 20210813
  Transmission Date: 20211014
  Serious: Yes (Other)
  Sender: FDA-Public Use
  Company Number: JP-ASTRAZENECA-2021A592958

PATIENT
  Age: 89 Year
  Sex: Male
  Weight: 39 kg

DRUGS (19)
  1. BREZTRI [Concomitant]
     Active Substance: BUDESONIDE\FORMOTEROL\GLYCOPYRRONIUM
     Dosage: DOSE UNKNOWN
     Route: 055
  2. HEPARIN CALCIUM [Concomitant]
     Active Substance: HEPARIN CALCIUM
     Route: 058
  3. SOLDEM 3A [Concomitant]
     Active Substance: CARBOHYDRATES\POTASSIUM CHLORIDE\SODIUM CHLORIDE\SODIUM LACTATE
     Dosage: DOSE UNKNOWN
     Route: 065
  4. HANP [Concomitant]
     Active Substance: CARPERITIDE
     Route: 065
  5. INTRALIPOS10% [Concomitant]
     Dosage: DOSE UNKNOWN
     Route: 065
  6. FUROSEMIDE. [Concomitant]
     Active Substance: FUROSEMIDE
     Dosage: AFTER BREAKFAST
     Route: 048
  7. ADOAIR [Concomitant]
     Active Substance: FLUTICASONE PROPIONATE\SALMETEROL XINAFOATE
     Route: 055
  8. MIDAZOLAM. [Concomitant]
     Active Substance: MIDAZOLAM
     Route: 065
  9. ROZEREM [Concomitant]
     Active Substance: RAMELTEON
     Dosage: BEFORE BEDTIME
     Route: 048
  10. MITASONE [Concomitant]
     Route: 065
  11. TORASEMIDE [Concomitant]
     Active Substance: TORSEMIDE
     Dosage: DOSE UNKNOWN
     Route: 065
  12. BROMHEXINE HYDROCHLORIDE [Concomitant]
     Active Substance: BROMHEXINE HYDROCHLORIDE
     Dosage: AFTER EVERY MEAL
     Route: 065
     Dates: start: 20210407
  13. MIYA?BM [Concomitant]
     Active Substance: CLOSTRIDIUM BUTYRICUM SPORES STRAIN M-55
     Dosage: AFTER EVERY MEAL
     Route: 048
  14. MEROPENEM. [Concomitant]
     Active Substance: MEROPENEM
     Dosage: DOSE UNKNOWN
     Route: 065
     Dates: start: 20210323, end: 20210408
  15. NEXIUM [Suspect]
     Active Substance: ESOMEPRAZOLE MAGNESIUM
     Indication: GASTROOESOPHAGEAL REFLUX DISEASE
     Dosage: 20.0MG UNKNOWN
     Route: 048
     Dates: start: 202103, end: 20210701
  16. CEFOZOPRAN HYDROCHLORIDE [Suspect]
     Active Substance: CEFOZOPRAN HYDROCHLORIDE
     Dosage: DOSE UNKNOWN
     Route: 065
     Dates: start: 20210421, end: 20210425
  17. THEOPHYLLINE [Concomitant]
     Active Substance: THEOPHYLLINE ANHYDROUS
     Dosage: AFTER BREAKFAST AND DINNER
     Route: 048
  18. URSO [Concomitant]
     Active Substance: URSODIOL
     Dosage: AFTER EVERY MEAL
     Route: 048
  19. CORTONE [Concomitant]
     Active Substance: CORTISONE ACETATE
     Dosage: AFTER BREAKFAST
     Route: 048

REACTIONS (15)
  - Gallbladder rupture [Unknown]
  - Eosinophilia [Not Recovered/Not Resolved]
  - Oedema [Unknown]
  - Blood albumin decreased [Unknown]
  - Hypertension [Unknown]
  - Drug eruption [Unknown]
  - Brain neoplasm [Unknown]
  - Colitis ischaemic [Unknown]
  - Renal impairment [Unknown]
  - Malnutrition [Unknown]
  - Hypothyroidism [Unknown]
  - Chronic kidney disease [Unknown]
  - Sepsis [Unknown]
  - Pyrexia [Unknown]
  - Hepatic function abnormal [Unknown]

NARRATIVE: CASE EVENT DATE: 202106
